FAERS Safety Report 9500096 (Version 1)
Quarter: 2013Q3

REPORT INFORMATION
  Report Type: Report from Study
  Country: DE (occurrence: DE)
  Receive Date: 20130905
  Receipt Date: 20130905
  Transmission Date: 20140515
  Serious: Yes (Hospitalization)
  Sender: FDA-Public Use
  Company Number: PHHO2013DE011346

PATIENT
  Age: 21 Year
  Sex: Male
  Weight: 91.9 kg

DRUGS (3)
  1. EVEROLIMUS [Suspect]
     Indication: RENAL TRANSPLANT
     Dosage: 3 MG, BID
     Route: 048
     Dates: start: 20070524
  2. MYFORTIC [Suspect]
     Indication: RENAL TRANSPLANT
     Dosage: 720 MG, BID
     Route: 048
     Dates: start: 20070116
  3. PREDNISONE [Suspect]
     Indication: RENAL TRANSPLANT

REACTIONS (1)
  - Pulmonary embolism [Recovered/Resolved]
